FAERS Safety Report 21400237 (Version 1)
Quarter: 2022Q3

REPORT INFORMATION
  Report Type: Spontaneous
  Country: US (occurrence: None)
  Receive Date: 20220929
  Receipt Date: 20220929
  Transmission Date: 20221026
  Serious: Yes (Death)
  Sender: FDA-Public Use
  Company Number: None

PATIENT
  Age: 75 Year
  Sex: Male

DRUGS (1)
  1. PIRFENIDONE [Suspect]
     Active Substance: PIRFENIDONE
     Indication: Idiopathic interstitial pneumonia
     Dosage: FREQUENCY : 3 TIMES A DAY;?
     Route: 048
     Dates: start: 20210921, end: 20220904

REACTIONS (6)
  - Oxygen consumption increased [None]
  - Back pain [None]
  - Pain [None]
  - General physical health deterioration [None]
  - Hypersomnia [None]
  - Decreased appetite [None]

NARRATIVE: CASE EVENT DATE: 20220904
